FAERS Safety Report 4962591-1 (Version None)
Quarter: 2006Q2

REPORT INFORMATION
  Report Type: 
  Country: None (occurrence: None)
  Receive Date: 20060404
  Receipt Date: 20060324
  Transmission Date: 20061013
  Serious: Yes (Other)
  Sender: FDA-Public Use
  Company Number: GB-BOEHRINGER INGELHEIM PHARMACEUTICALS, INC.-2006-DE-01576GD

PATIENT

DRUGS (7)
  1. ASPIRIN [Suspect]
     Indication: THROMBOSIS PROPHYLAXIS
  2. DIPYRIDAMOLE [Suspect]
     Indication: THROMBOSIS PROPHYLAXIS
  3. IBUPROFEN [Suspect]
  4. NAPROXEN [Suspect]
  5. DICLOFENAC [Suspect]
  6. ANTITHROMBOTICS [Suspect]
     Indication: THROMBOSIS PROPHYLAXIS
  7. NSAIDS [Suspect]

REACTIONS (2)
  - EROSIVE OESOPHAGITIS [None]
  - UPPER GASTROINTESTINAL HAEMORRHAGE [None]
